FAERS Safety Report 19183180 (Version 1)
Quarter: 2021Q2

REPORT INFORMATION
  Report Type: Spontaneous
  Country: US (occurrence: US)
  Receive Date: 20210427
  Receipt Date: 20210427
  Transmission Date: 20210717
  Serious: Yes (Other)
  Sender: FDA-Public Use
  Company Number: US-INTERCEPT-PM2021001314

PATIENT
  Sex: Female
  Weight: 85 kg

DRUGS (12)
  1. URSODIOL. [Concomitant]
     Active Substance: URSODIOL
     Dosage: 300 MILLIGRAM, TID
     Route: 048
     Dates: start: 20210223
  2. OCALIVA [Suspect]
     Active Substance: OBETICHOLIC ACID
     Dosage: 10 MILLIGRAM, QD
     Route: 048
     Dates: start: 20210223
  3. FOSAMAX [Concomitant]
     Active Substance: ALENDRONATE SODIUM
  4. OCALIVA [Suspect]
     Active Substance: OBETICHOLIC ACID
     Dosage: 10 MILLIGRAM, QD
     Route: 048
     Dates: end: 202002
  5. ONDANSETRON [Concomitant]
     Active Substance: ONDANSETRON
  6. PANTOPRAZOLE [Concomitant]
     Active Substance: PANTOPRAZOLE
  7. OCALIVA [Suspect]
     Active Substance: OBETICHOLIC ACID
     Dosage: 10 MILLIGRAM, 5X/WK
     Route: 048
  8. OCALIVA [Suspect]
     Active Substance: OBETICHOLIC ACID
     Indication: PRIMARY BILIARY CHOLANGITIS
     Dosage: 5 MILLIGRAM, QD
     Route: 048
     Dates: start: 20180518
  9. LACTULOSE. [Concomitant]
     Active Substance: LACTULOSE
  10. URSODIOL. [Concomitant]
     Active Substance: URSODIOL
     Dosage: UNK
  11. VITAMIN D [COLECALCIFEROL] [Concomitant]
     Active Substance: CHOLECALCIFEROL
  12. CALCIUM [Concomitant]
     Active Substance: CALCIUM

REACTIONS (5)
  - Hepatic fibrosis [Unknown]
  - Hepatic cirrhosis [Unknown]
  - Central obesity [Unknown]
  - Cholangitis sclerosing [Unknown]
  - Pain [Unknown]
